FAERS Safety Report 5927014-4 (Version None)
Quarter: 2008Q4

REPORT INFORMATION
  Report Type: 
  Country: None (occurrence: None)
  Receive Date: 20081021
  Receipt Date: 20081021
  Transmission Date: 20090506
  Serious: No
  Sender: FDA-Public Use
  Company Number: None

PATIENT
  Age: 64 Year
  Sex: Male
  Weight: 75.16 kg

DRUGS (2)
  1. CARBOPLATIN [Suspect]
     Indication: CHEMOTHERAPY
     Dosage: 577 MG ONCE IV
     Route: 042
     Dates: start: 20080807, end: 20080904
  2. CARBOPLATIN [Suspect]
     Dosage: 530 MG ONCE IV
     Route: 042
     Dates: start: 20080911, end: 20080911

REACTIONS (1)
  - THROMBOCYTOPENIA [None]
